FAERS Safety Report 8449369-1 (Version None)
Quarter: 2012Q2

REPORT INFORMATION
  Report Type: 
  Country: None (occurrence: None)
  Receive Date: 20120619
  Receipt Date: 19910919
  Transmission Date: 20120825
  Serious: Yes (Other)
  Sender: FDA-Public Use
  Company Number: US-ROCHE-17986

PATIENT
  Sex: Female

DRUGS (1)
  1. SYNAREL [Suspect]
     Indication: UTERINE LEIOMYOMA
     Dosage: UNIT DOSE=0 MG/ML FORM STRENGTH=2 MG/ML
     Route: 045

REACTIONS (2)
  - VAGINAL HAEMORRHAGE [None]
  - ABORTION SPONTANEOUS [None]
